FAERS Safety Report 8387958-3 (Version None)
Quarter: 2012Q2

REPORT INFORMATION
  Report Type: 
  Country: None (occurrence: None)
  Receive Date: 20120525
  Receipt Date: 20120522
  Transmission Date: 20120825
  Serious: Yes (Life-Threatening, Hospitalization)
  Sender: FDA-Public Use
  Company Number: PHHY2012FR033857

PATIENT
  Sex: Male
  Weight: 65 kg

DRUGS (2)
  1. GILENYA [Suspect]
     Indication: MULTIPLE SCLEROSIS
     Dosage: 0.5 MG, QD
     Route: 048
     Dates: start: 20120120
  2. ASPIRIN [Concomitant]
     Indication: MIGRAINE
     Dosage: 160 MG, QD
     Route: 048
     Dates: start: 20030623

REACTIONS (2)
  - MYOCARDIAL INFARCTION [None]
  - MALAISE [None]
